FAERS Safety Report 20985234 (Version 1)
Quarter: 2022Q2

REPORT INFORMATION
  Report Type: Spontaneous
  Country: US (occurrence: US)
  Receive Date: 20220621
  Receipt Date: 20220621
  Transmission Date: 20220721
  Serious: Yes (Other)
  Sender: FDA-Public Use
  Company Number: US-SA-SAC20220616000120

PATIENT
  Age: 84 Year
  Sex: Male

DRUGS (1)
  1. ZANTAC [Suspect]
     Active Substance: RANITIDINE HYDROCHLORIDE
     Dosage: FREQUENCY: OTHER
     Route: 065
     Dates: start: 201301, end: 202007

REACTIONS (3)
  - Bladder cancer [Unknown]
  - Oesophageal carcinoma [Unknown]
  - Gastric cancer stage I [Unknown]

NARRATIVE: CASE EVENT DATE: 20200619
